FAERS Safety Report 15428086 (Version 1)
Quarter: 2018Q3

REPORT INFORMATION
  Report Type: Report from Study
  Country: JP (occurrence: JP)
  Receive Date: 20180926
  Receipt Date: 20180926
  Transmission Date: 20181010
  Serious: Yes (Death, Hospitalization, Other)
  Sender: FDA-Public Use
  Company Number: JP-AMGEN-JPNNI2018131426

PATIENT
  Age: 75 Year
  Sex: Male

DRUGS (3)
  1. ETELCALCETIDE [Suspect]
     Active Substance: ETELCALCETIDE
     Indication: HYPERPARATHYROIDISM SECONDARY
     Dosage: 5 MG, 3 TIMES/WK
     Route: 042
     Dates: start: 20170717, end: 20171208
  2. OXAROL [Concomitant]
     Active Substance: MAXACALCITOL
     Dosage: UNK
     Dates: end: 20171212
  3. RIONA [Concomitant]
     Active Substance: FERRIC CITRATE ANHYDROUS
     Dosage: UNK
     Dates: end: 20171210

REACTIONS (4)
  - Fall [Unknown]
  - Anaemia [Unknown]
  - Contusion [Unknown]
  - Cardiac failure [Fatal]

NARRATIVE: CASE EVENT DATE: 20171209
